FAERS Safety Report 9029445 (Version 2)
Quarter: 2013Q1

REPORT INFORMATION
  Report Type: Spontaneous
  Country: IT (occurrence: IT)
  Receive Date: 20130125
  Receipt Date: 20130204
  Transmission Date: 20140127
  Serious: Yes (Hospitalization)
  Sender: FDA-Public Use
  Company Number: IT-SANOFI-AVENTIS-2013SA001426

PATIENT
  Age: 73 Year
  Sex: Male

DRUGS (17)
  1. CARVEDILOL [Suspect]
     Indication: CARDIAC DISORDER
     Route: 048
     Dates: start: 20121226, end: 20130108
  2. CARVEDILOL [Suspect]
     Indication: CARDIOMEGALY
     Route: 048
     Dates: start: 20121226, end: 20130108
  3. TRIATEC [Suspect]
     Indication: ESSENTIAL HYPERTENSION
     Route: 048
     Dates: start: 20121226, end: 20130108
  4. LASIX [Suspect]
     Indication: POLYURIA
     Route: 048
     Dates: start: 20121226, end: 20130108
  5. LEVOFLOXACIN [Suspect]
     Indication: PNEUMONIA
     Route: 048
     Dates: start: 20121226, end: 20130104
  6. LEVOFLOXACIN [Suspect]
     Indication: PNEUMONITIS
     Route: 048
     Dates: start: 20121226, end: 20130104
  7. METFORMIN [Suspect]
     Indication: TYPE 2 DIABETES MELLITUS
     Route: 048
     Dates: start: 20121226, end: 20121229
  8. METFORMIN [Suspect]
     Indication: TYPE 2 DIABETES MELLITUS
     Route: 048
     Dates: start: 20121226, end: 20121229
  9. NITRO-DUR [Suspect]
     Indication: ANGINA UNSTABLE
     Dosage: STRENGTH: 10 MG/DIE
     Route: 062
     Dates: start: 20121226, end: 20130108
  10. CARDIOASPIRIN [Suspect]
     Indication: ANTICOAGULANT THERAPY
     Route: 048
     Dates: start: 20121226, end: 20121229
  11. BRONCOVALEAS [Suspect]
     Indication: PNEUMONIA
     Dosage: FORM: SOLUTION FOR NEBULIZATION?STRENGTH: 0.5 %?ROUTE- INHALATION?DOSE- 5 DROPS
     Dates: start: 20130101, end: 20130107
  12. BRONCOVALEAS [Suspect]
     Indication: PNEUMONITIS
     Dosage: FORM: SOLUTION FOR NEBULIZATION?STRENGTH: 0.5 %?ROUTE- INHALATION?DOSE- 5 DROPS
     Dates: start: 20130101, end: 20130107
  13. CLENIL [Suspect]
     Indication: PNEUMONIA
     Dosage: ROUTE: INTRANASAL
     Dates: start: 20121226, end: 20130101
  14. CLENIL [Suspect]
     Indication: PNEUMONITIS
     Dosage: ROUTE: INTRANASAL
     Dates: start: 20121226, end: 20130101
  15. CLEXANE [Concomitant]
     Dates: start: 20130102, end: 20130104
  16. LANSOPRAZOLE [Concomitant]
     Indication: GASTROOESOPHAGEAL REFLUX DISEASE
     Route: 048
     Dates: start: 20121226, end: 20130108
  17. IDROPLURIVIT [Concomitant]
     Dates: start: 20130102, end: 20130104

REACTIONS (1)
  - Tendonitis [Unknown]
